FAERS Safety Report 16802199 (Version 2)
Quarter: 2019Q4

REPORT INFORMATION
  Report Type: Spontaneous
  Country: US (occurrence: US)
  Receive Date: 20190912
  Receipt Date: 20191016
  Transmission Date: 20200122
  Serious: Yes (Hospitalization, Other)
  Sender: FDA-Public Use
  Company Number: US-PFIZER INC-2019197027

PATIENT
  Age: 51 Year
  Sex: Male
  Weight: 81.63 kg

DRUGS (4)
  1. REVATIO [Suspect]
     Active Substance: SILDENAFIL CITRATE
     Indication: HEPATIC CIRRHOSIS
     Dosage: 40 MG, 3X/DAY (TOTAL 6 PER DAY.120 MG DAILY TOTAL)
     Route: 048
     Dates: start: 20050704
  2. REVATIO [Suspect]
     Active Substance: SILDENAFIL CITRATE
     Indication: PORTAL HYPERTENSION
  3. REVATIO [Suspect]
     Active Substance: SILDENAFIL CITRATE
     Indication: SECONDARY HYPERTENSION
  4. REVATIO [Suspect]
     Active Substance: SILDENAFIL CITRATE
     Indication: PULMONARY HYPERTENSION

REACTIONS (9)
  - Hypokalaemia [Unknown]
  - Off label use [Unknown]
  - Encephalopathy [Unknown]
  - Generalised oedema [Unknown]
  - Weight increased [Recovered/Resolved]
  - Ammonia increased [Unknown]
  - Fluid retention [Recovered/Resolved]
  - Oedema peripheral [Unknown]
  - Product use issue [Unknown]

NARRATIVE: CASE EVENT DATE: 20050704
